FAERS Safety Report 13883025 (Version 1)
Quarter: 2017Q3

REPORT INFORMATION
  Report Type: Spontaneous
  Country: IT (occurrence: IT)
  Receive Date: 20170818
  Receipt Date: 20170818
  Transmission Date: 20171127
  Serious: Yes (Other)
  Sender: FDA-Public Use
  Company Number: IT-ELI_LILLY_AND_COMPANY-IT201708002951

PATIENT
  Age: 14 Year
  Sex: Female
  Weight: 52 kg

DRUGS (1)
  1. OLANZAPINE. [Suspect]
     Active Substance: OLANZAPINE
     Indication: MOOD ALTERED
     Dosage: 3.75 MG, DAILY
     Route: 048
     Dates: start: 20170630, end: 20170725

REACTIONS (3)
  - Off label use [Unknown]
  - Hepatocellular injury [Recovered/Resolved]
  - Gamma-glutamyltransferase increased [Recovered/Resolved]

NARRATIVE: CASE EVENT DATE: 20170706
